FAERS Safety Report 22254436 (Version 1)
Quarter: 2023Q2

REPORT INFORMATION
  Report Type: Spontaneous
  Country: US (occurrence: None)
  Receive Date: 20230425
  Receipt Date: 20230425
  Transmission Date: 20230722
  Serious: No
  Sender: FDA-Public Use
  Company Number: None

PATIENT
  Age: 37 Year
  Sex: Male
  Weight: 72 kg

DRUGS (5)
  1. PROHANCE [Suspect]
     Active Substance: GADOTERIDOL
     Indication: Scan with contrast
     Dates: start: 20150529
  2. VITAMINS [Concomitant]
     Active Substance: VITAMINS
  3. HERBALS\TURMERIC [Concomitant]
     Active Substance: HERBALS\TURMERIC
  4. MELATONIN [Concomitant]
     Active Substance: MELATONIN
  5. ALLEGRA [Concomitant]
     Active Substance: FEXOFENADINE HYDROCHLORIDE

REACTIONS (17)
  - Headache [None]
  - Neck pain [None]
  - Spinal pain [None]
  - Paraesthesia [None]
  - Neuralgia [None]
  - Tendon disorder [None]
  - Stomatitis [None]
  - Dyspepsia [None]
  - Flatulence [None]
  - Abdominal discomfort [None]
  - Abdominal discomfort [None]
  - Faeces soft [None]
  - Brain fog [None]
  - Fatigue [None]
  - Malaise [None]
  - Contrast media deposition [None]
  - Contrast media reaction [None]
